FAERS Safety Report 4839122-X (Version None)
Quarter: 2005Q4

REPORT INFORMATION
  Report Type: 
  Country: None (occurrence: None)
  Receive Date: 20051129
  Receipt Date: 20051124
  Transmission Date: 20060501
  Serious: Yes (Life-Threatening)
  Sender: FDA-Public Use
  Company Number: GB-GLAXOSMITHKLINE-B0401648A

PATIENT
  Age: 73 Year
  Sex: Male

DRUGS (16)
  1. FLUCLOXACILLIN [Suspect]
     Route: 042
     Dates: start: 20050927, end: 20051020
  2. AMOXICILLIN [Suspect]
     Route: 042
     Dates: start: 20051014, end: 20051017
  3. GENTAMICIN [Suspect]
     Dosage: 320MG UNKNOWN
     Route: 042
     Dates: start: 20050927, end: 20051022
  4. CIPROFLOXACIN [Suspect]
     Dosage: 500MG TWICE PER DAY
     Route: 048
     Dates: start: 20050928, end: 20051006
  5. TRIMETHOPRIM [Suspect]
     Indication: CYSTITIS ESCHERICHIA
     Dosage: 200MG TWICE PER DAY
     Route: 048
     Dates: start: 20051011, end: 20051016
  6. WARFARIN SODIUM [Concomitant]
     Indication: DEEP VEIN THROMBOSIS
     Route: 048
     Dates: start: 20050414, end: 20050919
  7. CO-DYDRAMOL [Concomitant]
     Dosage: 2TAB FOUR TIMES PER DAY
     Route: 048
     Dates: end: 20051020
  8. FERROUS SULFATE TAB [Concomitant]
     Dosage: 200MG THREE TIMES PER DAY
     Route: 048
     Dates: start: 20050913
  9. FLUCONAZOLE [Concomitant]
     Indication: ORAL CANDIDIASIS
     Dosage: 200MG IN THE MORNING
     Route: 048
     Dates: start: 20050913, end: 20050914
  10. SENNA [Concomitant]
     Dosage: 2TAB AT NIGHT
     Route: 048
     Dates: start: 20050914, end: 20051016
  11. LACTULOSE [Concomitant]
     Indication: CONSTIPATION
     Dosage: 10ML TWICE PER DAY
     Route: 048
     Dates: start: 20050914, end: 20051012
  12. ENOXAPARIN [Concomitant]
     Dosage: 100MG PER DAY
     Route: 058
     Dates: start: 20050917
  13. PARAFFIN [Concomitant]
     Indication: STASIS DERMATITIS
     Dosage: 1TAB PER DAY
     Route: 061
     Dates: start: 20050920
  14. FUROSEMIDE [Concomitant]
     Indication: FLUID OVERLOAD
     Dosage: 20MG IN THE MORNING
     Route: 048
     Dates: start: 20050922, end: 20051018
  15. PICOLAX [Concomitant]
     Route: 048
     Dates: start: 20051012
  16. SALINE [Concomitant]
     Dates: start: 20051011, end: 20051013

REACTIONS (4)
  - CLOSTRIDIUM COLITIS [None]
  - GASTROINTESTINAL HAEMORRHAGE [None]
  - INCREASED VISCOSITY OF BRONCHIAL SECRETION [None]
  - NAUSEA [None]
